FAERS Safety Report 4430875-1 (Version None)
Quarter: 2004Q3

REPORT INFORMATION
  Report Type: 
  Country: None (occurrence: None)
  Receive Date: 20040823
  Receipt Date: 20040810
  Transmission Date: 20050211
  Serious: Yes (Hospitalization, Other)
  Sender: FDA-Public Use
  Company Number: FR-GLAXOSMITHKLINE-B0342630A

PATIENT
  Age: 43 Year
  Sex: Male

DRUGS (3)
  1. TRIZIVIR [Suspect]
     Indication: HIV INFECTION
     Route: 048
     Dates: start: 20040517, end: 20040624
  2. KETOPROFEN [Suspect]
     Indication: BACK PAIN
     Route: 048
     Dates: start: 20040609, end: 20040615
  3. LEVOCETIRIZINE [Suspect]
     Indication: SINUSITIS
     Route: 048
     Dates: start: 20040609, end: 20040615

REACTIONS (10)
  - ASTHENIA [None]
  - DRY MOUTH [None]
  - HOT FLUSH [None]
  - HYPERSENSITIVITY [None]
  - LYMPHADENOPATHY [None]
  - PYREXIA [None]
  - RASH MACULO-PAPULAR [None]
  - RASH PAPULAR [None]
  - TONGUE OEDEMA [None]
  - WEIGHT DECREASED [None]
